FAERS Safety Report 12566174 (Version 1)
Quarter: 2016Q3

REPORT INFORMATION
  Report Type: Spontaneous
  Country: US (occurrence: US)
  Receive Date: 20160718
  Receipt Date: 20160718
  Transmission Date: 20161109
  Serious: Yes (Other)
  Sender: FDA-Public Use
  Company Number: US-GLAXOSMITHKLINE-US2016101328

PATIENT
  Sex: Female

DRUGS (1)
  1. ADVAIR DISKUS [Suspect]
     Active Substance: FLUTICASONE PROPIONATE\SALMETEROL XINAFOATE
     Indication: PRODUCT USED FOR UNKNOWN INDICATION
     Dosage: UNK

REACTIONS (6)
  - Cerebrovascular accident [Unknown]
  - Skin disorder [Unknown]
  - Pharyngeal disorder [Unknown]
  - Cardiac assistance device user [Unknown]
  - Rheumatoid arthritis [Unknown]
  - Device use error [Unknown]
